FAERS Safety Report 6554866-X (Version None)
Quarter: 2010Q1

REPORT INFORMATION
  Report Type: 
  Country: None (occurrence: None)
  Receive Date: 20100127
  Receipt Date: 20100120
  Transmission Date: 20100710
  Serious: Yes (Death)
  Sender: FDA-Public Use
  Company Number: MX-MERCK-1001MEX00009

PATIENT
  Sex: Female

DRUGS (1)
  1. CANCIDAS [Suspect]
     Route: 065
     Dates: start: 20090101, end: 20090101

REACTIONS (1)
  - LIVER INJURY [None]
